FAERS Safety Report 15354469 (Version 1)
Quarter: 2018Q3

REPORT INFORMATION
  Report Type: Spontaneous
  Country: DE (occurrence: DE)
  Receive Date: 20180906
  Receipt Date: 20180906
  Transmission Date: 20181010
  Serious: Yes (Other)
  Sender: FDA-Public Use
  Company Number: DE-MERCK KGAA-2054664

PATIENT
  Sex: Male

DRUGS (1)
  1. NOVOTHYROX [Suspect]
     Active Substance: LEVOTHYROXINE SODIUM
     Indication: PRODUCT USED FOR UNKNOWN INDICATION

REACTIONS (15)
  - Hyperhidrosis [None]
  - Feeling hot [None]
  - Chest pain [None]
  - Tinnitus [None]
  - Fatigue [None]
  - Dyspnoea exertional [None]
  - Appetite disorder [None]
  - Arrhythmia [None]
  - Chest discomfort [None]
  - Insomnia [None]
  - Nausea [None]
  - Therapeutic response decreased [None]
  - Gait disturbance [None]
  - Visual impairment [None]
  - Feeling abnormal [None]
